FAERS Safety Report 24599805 (Version 4)
Quarter: 2025Q2

REPORT INFORMATION
  Report Type: Spontaneous
  Country: JP (occurrence: JP)
  Receive Date: 20241110
  Receipt Date: 20250404
  Transmission Date: 20250717
  Serious: Yes (Death, Other)
  Sender: ALEXION PHARMACEUTICALS
  Company Number: JP-ASTRAZENECA-240119066_013120_P_1

PATIENT
  Age: 69 Year
  Weight: 65 kg

DRUGS (14)
  1. DURVALUMAB [Suspect]
     Active Substance: DURVALUMAB
     Indication: Hepatocellular carcinoma
  2. DURVALUMAB [Suspect]
     Active Substance: DURVALUMAB
     Dosage: 1500 MILLIGRAM, Q4W
  3. TREMELIMUMAB [Suspect]
     Active Substance: TREMELIMUMAB
     Indication: Hepatocellular carcinoma
  4. GLIMEPIRIDE [Concomitant]
     Active Substance: GLIMEPIRIDE
     Dosage: AFTER BREAKFAST
  5. VOGLIBOSE [Concomitant]
     Active Substance: VOGLIBOSE
     Dosage: BEFORE EACH MEAL
  6. VILDAGLIPTIN [Concomitant]
     Active Substance: VILDAGLIPTIN
     Dosage: AFTER BREAKFAST AND DINNER
  7. PIOGLITAZONE [Concomitant]
     Active Substance: PIOGLITAZONE
     Dosage: AFTER BREAKFAST
  8. RABEPRAZOLE SODIUM [Concomitant]
     Active Substance: RABEPRAZOLE SODIUM
     Dosage: AFTER BREAKFAST
  9. VALSARTAN [Concomitant]
     Active Substance: VALSARTAN
     Dosage: AFTER BREAKFAST
  10. ENALAPRIL MALEATE [Concomitant]
     Active Substance: ENALAPRIL MALEATE
     Dosage: AFTER BREAKFAST
  11. TRICHLORMETHIAZIDE [Concomitant]
     Active Substance: TRICHLORMETHIAZIDE
     Dosage: AFTER BREAKFAST
  12. ATORVASTATIN [Concomitant]
     Active Substance: ATORVASTATIN
     Dosage: AFTER DINNER
  13. URSO [Concomitant]
     Active Substance: URSODIOL
     Indication: Hepatitis B
     Route: 065
  14. NEO-MINOPHAGEN C [Concomitant]
     Active Substance: AMMONIUM GLYCYRRHIZATE
     Indication: Hepatitis B

REACTIONS (8)
  - Septic shock [Unknown]
  - Hepatic steatosis [Unknown]
  - Adrenal insufficiency [Fatal]
  - Colitis [Fatal]
  - Decreased appetite [Unknown]
  - Diarrhoea [Not Recovered/Not Resolved]
  - Renal failure [Not Recovered/Not Resolved]
  - Liver disorder [Not Recovered/Not Resolved]
